FAERS Safety Report 15729135 (Version 1)
Quarter: 2018Q4

REPORT INFORMATION
  Report Type: Spontaneous
  Country: US (occurrence: US)
  Receive Date: 20181215
  Receipt Date: 20181215
  Transmission Date: 20190205
  Serious: Yes (Other)
  Sender: FDA-Public Use
  Company Number: None

PATIENT
  Age: 60 Year
  Sex: Female
  Weight: 72 kg

DRUGS (6)
  1. LEVOTHYROXINE. [Concomitant]
     Active Substance: LEVOTHYROXINE
  2. PAIN MEDS [Concomitant]
     Active Substance: UNSPECIFIED INGREDIENT
  3. LASIX [Concomitant]
     Active Substance: FUROSEMIDE
  4. MEPERIADOL [Concomitant]
  5. OXYCODONE [Concomitant]
     Active Substance: OXYCODONE
  6. AIMOVIG [Suspect]
     Active Substance: ERENUMAB-AOOE
     Indication: MIGRAINE
     Dosage: ?          QUANTITY:2 INJECTION PENS;OTHER FREQUENCY:PER MONTH;OTHER ROUTE:INJECTED IN LEG?
     Dates: start: 20180816, end: 20180915

REACTIONS (3)
  - Insurance issue [None]
  - Drug effect decreased [None]
  - Medication overuse headache [None]

NARRATIVE: CASE EVENT DATE: 20181001
